FAERS Safety Report 24727333 (Version 1)
Quarter: 2024Q4

REPORT INFORMATION
  Report Type: Spontaneous
  Country: US (occurrence: US)
  Receive Date: 20241212
  Receipt Date: 20241212
  Transmission Date: 20250115
  Serious: Yes (Other)
  Sender: MALLINCKRODT
  Company Number: US-MALLINCKRODT-MNK202407356

PATIENT
  Age: 5 Day
  Sex: Female
  Weight: 4 kg

DRUGS (1)
  1. NITRIC OXIDE [Suspect]
     Active Substance: NITRIC OXIDE
     Indication: Hypoxia
     Dosage: UNKNOWN
     Route: 055

REACTIONS (2)
  - Pulmonary embolism [Recovered/Resolved]
  - Right ventricular hypertension [Recovered/Resolved]
